FAERS Safety Report 16695234 (Version 1)
Quarter: 2019Q3

REPORT INFORMATION
  Report Type: Report from Study
  Country: None (occurrence: CO)
  Receive Date: 20190813
  Receipt Date: 20190813
  Transmission Date: 20191004
  Serious: Yes (Other)
  Sender: FDA-Public Use
  Company Number: CO-ABBVIE-19K-036-2886116-00

PATIENT
  Age: 61 Year
  Sex: Female

DRUGS (2)
  1. HUMIRA [Suspect]
     Active Substance: ADALIMUMAB
     Indication: ANKYLOSING SPONDYLITIS
     Route: 058
     Dates: start: 20110114
  2. HUMIRA [Suspect]
     Active Substance: ADALIMUMAB
     Indication: ANKYLOSING SPONDYLITIS
     Route: 058
     Dates: end: 20190307

REACTIONS (9)
  - Paraesthesia [Recovering/Resolving]
  - Urticaria [Recovering/Resolving]
  - Dry skin [Recovering/Resolving]
  - Influenza [Recovering/Resolving]
  - Alopecia areata [Recovering/Resolving]
  - Stress [Recovering/Resolving]
  - Anxiety [Recovering/Resolving]
  - Dermatitis [Recovering/Resolving]
  - Sleep disorder [Recovering/Resolving]

NARRATIVE: CASE EVENT DATE: 201905
